FAERS Safety Report 5763853-0 (Version None)
Quarter: 2008Q2

REPORT INFORMATION
  Report Type: 
  Country: None (occurrence: None)
  Receive Date: 20080606
  Receipt Date: 20080606
  Transmission Date: 20081010
  Serious: Yes (Hospitalization, Other)
  Sender: FDA-Public Use
  Company Number: None

PATIENT
  Age: 19 Year
  Sex: Male
  Weight: 86.1834 kg

DRUGS (1)
  1. INVEGA [Suspect]
     Indication: SCHIZOPHRENIA
     Dosage: 3 MG DAILY PO
     Route: 048
     Dates: start: 20080401, end: 20080413

REACTIONS (2)
  - DYSKINESIA [None]
  - MUSCLE SPASMS [None]
